FAERS Safety Report 18198014 (Version 1)
Quarter: 2020Q3

REPORT INFORMATION
  Report Type: Spontaneous
  Country: DE (occurrence: DE)
  Receive Date: 20200826
  Receipt Date: 20200826
  Transmission Date: 20201103
  Serious: Yes (Hospitalization, Other)
  Sender: FDA-Public Use
  Company Number: DE-MYLANLABS-2020M1072881

PATIENT
  Age: 81 Year
  Sex: Male
  Weight: 80 kg

DRUGS (11)
  1. CANDESARTAN. [Suspect]
     Active Substance: CANDESARTAN
     Indication: PRODUCT USED FOR UNKNOWN INDICATION
     Dosage: 8 MG, 1?0?0?0, TABLETTEN
     Route: 048
  2. BONDIOL [Concomitant]
     Active Substance: ALFACALCIDOL
     Dosage: 0.5 ?G, 0?0?0?1, TABLETTEN
     Route: 048
  3. LERCANIDIPINE [Suspect]
     Active Substance: LERCANIDIPINE
     Indication: PRODUCT USED FOR UNKNOWN INDICATION
     Dosage: 10 MG, 0?1?0?0, TABLETTEN
     Route: 048
  4. TORASEMIDE [Suspect]
     Active Substance: TORSEMIDE
     Indication: PRODUCT USED FOR UNKNOWN INDICATION
     Dosage: 20 MG, 1?1?0?0, TABLETTEN
     Route: 048
  5. ACETYLSALICYLIC ACID [Concomitant]
     Active Substance: ASPIRIN
     Dosage: 100 MG, 0?1?0?0, TABLETTEN
     Route: 048
  6. ATORVASTATIN [Concomitant]
     Active Substance: ATORVASTATIN
     Dosage: 20 MG, 0?0?1?0, TABLETTEN
     Route: 048
  7. ALLOPURINOL. [Concomitant]
     Active Substance: ALLOPURINOL
     Dosage: 100 MG, PAUSE, TABLETTEN
     Route: 048
  8. ACTRAPID [Concomitant]
     Active Substance: INSULIN HUMAN
     Dosage: NACH WERT
     Route: 058
  9. CARVEDILOL. [Concomitant]
     Active Substance: CARVEDILOL
     Dosage: 25 MG, 1?0?1?0, TABLETTEN
     Route: 048
  10. PANTOPRAZOL                        /01263201/ [Concomitant]
     Active Substance: PANTOPRAZOLE
     Dosage: 40 MG, 0?0?1?0, TABLETTEN
     Route: 048
  11. LEVEMIR [Concomitant]
     Active Substance: INSULIN DETEMIR
     Dosage: 40 IE, 0?0?0?1
     Route: 058

REACTIONS (5)
  - Product prescribing error [Unknown]
  - Abdominal distension [Unknown]
  - Oedema peripheral [Unknown]
  - Acute respiratory failure [Unknown]
  - Dyspnoea [Unknown]
